FAERS Safety Report 4577307-0 (Version None)
Quarter: 2005Q1

REPORT INFORMATION
  Report Type: 
  Country: None (occurrence: None)
  Receive Date: 20050201
  Receipt Date: 20050118
  Transmission Date: 20050727
  Serious: Yes (Other)
  Sender: FDA-Public Use
  Company Number: 200410545BBE

PATIENT
  Sex: Female

DRUGS (2)
  1. HYPRHO-D [Suspect]
     Indication: PREGNANCY
     Dates: start: 19941216
  2. THIMEROSAL   METHIOLATE   (ELI LILLY) (THIMEROSAL) [Suspect]

REACTIONS (2)
  - ADVERSE EVENT [None]
  - COMPLICATIONS OF MATERNAL EXPOSURE TO THERAPEUTIC DRUGS [None]
